FAERS Safety Report 4591677-9 (Version None)
Quarter: 2005Q1

REPORT INFORMATION
  Report Type: 
  Country: None (occurrence: None)
  Receive Date: 20050218
  Receipt Date: 20050209
  Transmission Date: 20050727
  Serious: Yes (Hospitalization, Other)
  Sender: FDA-Public Use
  Company Number: USA-2004-0016449

PATIENT
  Age: 49 Year
  Sex: Male

DRUGS (19)
  1. OXYCODONE HCL [Suspect]
     Indication: PAIN
     Dosage: SEE IMAGE
     Route: 048
  2. OXYCODONE HCL [Concomitant]
  3. SENOKOT (SENNOS DE A+B ) [Concomitant]
  4. PAXIL [Concomitant]
  5. AMBIEN [Concomitant]
  6. TOPAMAX [Concomitant]
  7. KLONOPIN [Concomitant]
  8. DILANTIN [Concomitant]
  9. ATIVAN [Concomitant]
  10. PERCOCET [Concomitant]
  11. PAMELOR [Concomitant]
  12. XANAX [Concomitant]
  13. PEPCID [Concomitant]
  14. ALDACTONE [Concomitant]
  15. ALBUTEROL [Concomitant]
  16. BIAXIN [Concomitant]
  17. PROVENTIL [Concomitant]
  18. NEURONTIN [Concomitant]
  19. ANAMINE [Concomitant]

REACTIONS (36)
  - ANXIETY [None]
  - APATHY [None]
  - ARTHRALGIA [None]
  - BACK PAIN [None]
  - BRONCHITIS ACUTE [None]
  - BRONCHOSPASM [None]
  - BUTTOCK PAIN [None]
  - CHEST PAIN [None]
  - CONSTIPATION [None]
  - COUGH [None]
  - DECREASED ACTIVITY [None]
  - DEPRESSION [None]
  - DRUG ABUSER [None]
  - DRUG DEPENDENCE [None]
  - DRUG INEFFECTIVE [None]
  - DRUG WITHDRAWAL SYNDROME [None]
  - DYSPEPSIA [None]
  - EMOTIONAL DISTRESS [None]
  - ERECTILE DYSFUNCTION [None]
  - HEARING IMPAIRED [None]
  - HYPERHIDROSIS [None]
  - HYPERSOMNIA [None]
  - INTENTIONAL MISUSE [None]
  - LIBIDO DECREASED [None]
  - OEDEMA PERIPHERAL [None]
  - OVERDOSE [None]
  - PAIN [None]
  - PAIN IN EXTREMITY [None]
  - PALPITATIONS [None]
  - RECTAL HAEMORRHAGE [None]
  - SEXUAL DYSFUNCTION [None]
  - SINUSITIS [None]
  - SOMNOLENCE [None]
  - STUPOR [None]
  - SUICIDAL IDEATION [None]
  - TREMOR [None]
